FAERS Safety Report 18409095 (Version 1)
Quarter: 2020Q4

REPORT INFORMATION
  Report Type: Spontaneous
  Country: US (occurrence: US)
  Receive Date: 20201021
  Receipt Date: 20201021
  Transmission Date: 20210114
  Serious: Yes (Hospitalization)
  Sender: FDA-Public Use
  Company Number: US-ELI_LILLY_AND_COMPANY-US202010005295

PATIENT
  Age: 72 Year
  Sex: Male

DRUGS (4)
  1. LANTUS [Concomitant]
     Active Substance: INSULIN GLARGINE
     Indication: TYPE 2 DIABETES MELLITUS
     Dosage: 35 U
     Dates: start: 2016
  2. HUMALOG [Suspect]
     Active Substance: INSULIN LISPRO
     Indication: TYPE 2 DIABETES MELLITUS
     Dosage: 15 U, UNKNOWN
     Route: 058
     Dates: start: 2018
  3. ASPIRIN [ACETYLSALICYLIC ACID] [Suspect]
     Active Substance: ASPIRIN
     Indication: PRODUCT USED FOR UNKNOWN INDICATION
     Dosage: UNK UNK, UNKNOWN
     Route: 065
  4. HUMULIN R [Suspect]
     Active Substance: INSULIN HUMAN
     Indication: TYPE 2 DIABETES MELLITUS
     Dosage: 15 U, UNKNOWN
     Route: 065
     Dates: start: 2017

REACTIONS (7)
  - Pain in extremity [Unknown]
  - Blood glucose increased [Not Recovered/Not Resolved]
  - Muscular dystrophy [Not Recovered/Not Resolved]
  - Thrombosis [Not Recovered/Not Resolved]
  - Depression [Not Recovered/Not Resolved]
  - Anxiety [Not Recovered/Not Resolved]
  - Gastrointestinal haemorrhage [Recovered/Resolved]

NARRATIVE: CASE EVENT DATE: 202004
